FAERS Safety Report 20986518 (Version 1)
Quarter: 2022Q2

REPORT INFORMATION
  Report Type: Spontaneous
  Country: DE (occurrence: DE)
  Receive Date: 20220621
  Receipt Date: 20220621
  Transmission Date: 20220721
  Serious: Yes (Hospitalization, Other)
  Sender: FDA-Public Use
  Company Number: DE-SANOFI-01147183

PATIENT
  Sex: Female

DRUGS (1)
  1. AUBAGIO [Suspect]
     Active Substance: TERIFLUNOMIDE
     Indication: Multiple sclerosis
     Dosage: 14 MG, QD
     Dates: start: 202111

REACTIONS (16)
  - Cataract [Unknown]
  - Mental disorder [Unknown]
  - Dysphagia [Unknown]
  - Laryngeal disorder [Unknown]
  - Condition aggravated [Unknown]
  - Skin wrinkling [Unknown]
  - Fatigue [Unknown]
  - Depressed mood [Unknown]
  - Anhedonia [Unknown]
  - Gastrointestinal motility disorder [Unknown]
  - Nail disorder [Unknown]
  - Musculoskeletal pain [Unknown]
  - Toothache [Unknown]
  - Weight decreased [Unknown]
  - Asthenia [Unknown]
  - Alopecia [Unknown]

NARRATIVE: CASE EVENT DATE: 20210101
